FAERS Safety Report 5495469-8 (Version None)
Quarter: 2007Q4

REPORT INFORMATION
  Report Type: 
  Country: None (occurrence: None)
  Receive Date: 20071023
  Receipt Date: 20071008
  Transmission Date: 20080405
  Serious: Yes (Other)
  Sender: FDA-Public Use
  Company Number: US-JNJFOC-20071002478

PATIENT
  Age: 75 Year
  Sex: Male

DRUGS (9)
  1. DACOGEN [Suspect]
     Indication: MYELODYSPLASTIC SYNDROME
     Dosage: CYCLE 1, CYCLE 2, CYCLE 3, CYCLE 4
     Dates: start: 20070625
  2. DACOGEN [Suspect]
     Indication: MYELODYSPLASTIC SYNDROME
     Dosage: CYCLE 1, CYCLE 2, CYCLE 3, CYCLE 4
     Dates: start: 20070806
  3. DACOGEN [Suspect]
     Indication: MYELODYSPLASTIC SYNDROME
     Dosage: CYCLE 1, CYCLE 2, CYCLE 3, CYCLE 4
     Dates: start: 20070911
  4. DACOGEN [Suspect]
     Indication: MYELODYSPLASTIC SYNDROME
     Dosage: CYCLE 1, CYCLE 2, CYCLE 3, CYCLE 4
     Dates: start: 20071009
  5. ETHAMBUTOL (ETHAMBUTOL) UNSPECIFIED [Suspect]
     Indication: DRUG USE FOR UNKNOWN INDICATION
  6. INH [Suspect]
     Indication: DRUG USE FOR UNKNOWN INDICATION
  7. ACYCLOVIR [Concomitant]
  8. B6 (PYRIDOXINE HYDROCHLORIDE) [Concomitant]
  9. UROXATRAL [Concomitant]

REACTIONS (1)
  - NEUROPATHY PERIPHERAL [None]
